FAERS Safety Report 5503569-9 (Version None)
Quarter: 2007Q4

REPORT INFORMATION
  Report Type: 
  Country: None (occurrence: None)
  Receive Date: 20071029
  Receipt Date: 20071012
  Transmission Date: 20080405
  Serious: Yes (Life-Threatening, Hospitalization)
  Sender: FDA-Public Use
  Company Number: 2007S1009960

PATIENT
  Sex: Male

DRUGS (31)
  1. DIKLOFENAK MERCK NM (DICLOFENAC SODIUM) [Suspect]
     Indication: PAIN
     Dosage: 50 MG; 3 TIMES A DAY; ORAL
     Route: 048
     Dates: start: 20070729, end: 20070916
  2. ALLOPURINOL [Concomitant]
  3. ATENOLOL MERCK NM [Concomitant]
  4. CEFUROXIME [Concomitant]
  5. DICLODAN [Concomitant]
  6. ENALAPRIL MALEATE [Concomitant]
  7. FLUCONAZOLE [Concomitant]
  8. FURIX [Concomitant]
  9. CARBOHYDRATES [Concomitant]
  10. HEXAMYCIN [Concomitant]
  11. HJERDYL [Concomitant]
  12. IBUMETIN [Concomitant]
  13. IMOCLONE [Concomitant]
  14. JERN C [Concomitant]
  15. POTASSIUM CHLORIDE [Concomitant]
  16. KLYX /00661401/ [Concomitant]
  17. LACTULOSE [Concomitant]
  18. LANSOPRAZOLE [Concomitant]
  19. MANDOLGIN [Concomitant]
  20. MIRTAZAPINE [Concomitant]
  21. MYCOSTATIN /00982301/ [Concomitant]
  22. SODIUM CHLORIDE [Concomitant]
  23. SODIUM CHLORIDE W/GLUCOSE [Concomitant]
  24. PAMOL /00020001/ [Concomitant]
  25. PERSANTIN [Concomitant]
  26. PERSANTINE [Concomitant]
  27. PICOLON [Concomitant]
  28. SELEXID /00445301/ [Concomitant]
  29. SIMVASTATIN [Concomitant]
  30. VEPICOMBIN NOVUM [Concomitant]
  31. VITAMINERAL [Concomitant]

REACTIONS (1)
  - AZOTAEMIA [None]
